FAERS Safety Report 5891983-1 (Version None)
Quarter: 2008Q3

REPORT INFORMATION
  Report Type: 
  Country: None (occurrence: None)
  Receive Date: 20080922
  Receipt Date: 20080910
  Transmission Date: 20090109
  Serious: Yes (Other)
  Sender: FDA-Public Use
  Company Number: JP-PFIZER INC-2008076994

PATIENT
  Age: 60 Year
  Sex: Male

DRUGS (2)
  1. ZITHROMAX [Suspect]
     Indication: PHARYNGITIS
     Dosage: DAILY DOSE:500MG
     Route: 048
     Dates: start: 20080909, end: 20080909
  2. LOXOPROFEN SODIUM [Concomitant]
     Route: 048
     Dates: start: 20080909

REACTIONS (2)
  - ATRIAL FIBRILLATION [None]
  - DIARRHOEA [None]
